FAERS Safety Report 13017774 (Version 11)
Quarter: 2021Q1

REPORT INFORMATION
  Report Type: Other
  Country: JP (occurrence: JP)
  Receive Date: 20161212
  Receipt Date: 20210303
  Transmission Date: 20210419
  Serious: Yes (Hospitalization)
  Sender: FDA-Public Use
  Company Number: JP-ROCHE-1864071

PATIENT
  Age: 7 Year
  Sex: Female

DRUGS (10)
  1. RITUXIMAB. [Suspect]
     Active Substance: RITUXIMAB
     Dosage: DOSAGE IS UNCERTAIN.
     Route: 041
     Dates: start: 20160826, end: 20160826
  2. BLINDED MYCOPHENOLATE MOFETIL [Suspect]
     Active Substance: MYCOPHENOLATE MOFETIL
     Route: 048
     Dates: start: 20160710, end: 20160802
  3. RITUXIMAB. [Suspect]
     Active Substance: RITUXIMAB
     Dosage: DOSAGE IS UNCERTAIN.
     Route: 041
     Dates: start: 20160902
  4. RITUXIMAB. [Suspect]
     Active Substance: RITUXIMAB
     Dosage: DOSAGE IS UNCERTAIN.
     Route: 041
     Dates: start: 20160819, end: 20160819
  5. BAKTAR [Suspect]
     Active Substance: SULFAMETHOXAZOLE\TRIMETHOPRIM
     Indication: INFECTION PROPHYLAXIS
     Route: 048
     Dates: start: 20160812
  6. NEORAL [Concomitant]
     Active Substance: CYCLOSPORINE
  7. RITUXIMAB. [Suspect]
     Active Substance: RITUXIMAB
     Indication: NEPHROTIC SYNDROME
     Dosage: DOSAGE IS UNCERTAIN.
     Route: 041
     Dates: start: 20160812, end: 20160902
  8. PREDNISOLONE. [Concomitant]
     Active Substance: PREDNISOLONE
     Indication: NEPHROTIC SYNDROME
     Route: 048
     Dates: start: 20160710, end: 20160802
  9. BLINDED MYCOPHENOLATE MOFETIL [Suspect]
     Active Substance: MYCOPHENOLATE MOFETIL
     Dosage: DOSAGE IS UNCERTAIN.
     Route: 048
     Dates: start: 20161208
  10. BLINDED MYCOPHENOLATE MOFETIL [Suspect]
     Active Substance: MYCOPHENOLATE MOFETIL
     Indication: NEPHROTIC SYNDROME
     Route: 048
     Dates: start: 20160908, end: 20161128

REACTIONS (6)
  - Off label use [Unknown]
  - Febrile neutropenia [Recovered/Resolved]
  - Infection [Unknown]
  - Intentional product use issue [Unknown]
  - Agranulocytosis [Unknown]
  - Wrong technique in product usage process [Unknown]

NARRATIVE: CASE EVENT DATE: 201611
